FAERS Safety Report 19375231 (Version 1)
Quarter: 2021Q2

REPORT INFORMATION
  Report Type: Spontaneous
  Country: US (occurrence: US)
  Receive Date: 20210604
  Receipt Date: 20210604
  Transmission Date: 20210717
  Serious: No
  Sender: FDA-Public Use
  Company Number: US-GLAXOSMITHKLINE-US2021112557

PATIENT
  Sex: Male

DRUGS (1)
  1. NUCALA [Suspect]
     Active Substance: MEPOLIZUMAB
     Indication: PNEUMONITIS
     Dosage: 100 MG, CYC
     Dates: start: 20210124

REACTIONS (4)
  - Feeling abnormal [Unknown]
  - Eosinophil count decreased [Unknown]
  - Paraesthesia [Unknown]
  - Chest pain [Unknown]
